FAERS Safety Report 4616664-3 (Version None)
Quarter: 2005Q1

REPORT INFORMATION
  Report Type: 
  Country: None (occurrence: None)
  Receive Date: 20050318
  Receipt Date: 20050303
  Transmission Date: 20050727
  Serious: Yes (Hospitalization)
  Sender: FDA-Public Use
  Company Number: 199684

PATIENT
  Age: 32 Year
  Sex: Female

DRUGS (2)
  1. AVONEX [Suspect]
     Indication: MULTIPLE SCLEROSIS
     Dosage: 30 UG; QW; IM
     Route: 030
     Dates: start: 20000925
  2. AVONEX [Suspect]
     Indication: MULTIPLE SCLEROSIS
     Dosage: 30 UG; QW; IM

REACTIONS (13)
  - APNOEA [None]
  - ASTHMA [None]
  - CARDIO-RESPIRATORY ARREST [None]
  - CONDITION AGGRAVATED [None]
  - CYST [None]
  - DIFFICULTY IN WALKING [None]
  - FATIGUE [None]
  - HAEMORRHAGE INTRACRANIAL [None]
  - MULTIPLE SCLEROSIS [None]
  - ORAL INTAKE REDUCED [None]
  - POST PROCEDURAL COMPLICATION [None]
  - POST PROCEDURAL HAEMORRHAGE [None]
  - VISUAL ACUITY REDUCED [None]
